FAERS Safety Report 9830477 (Version 1)
Quarter: 2014Q1

REPORT INFORMATION
  Report Type: Spontaneous
  Country: US (occurrence: US)
  Receive Date: 20140120
  Receipt Date: 20140120
  Transmission Date: 20141002
  Serious: Yes (Other)
  Sender: FDA-Public Use
  Company Number: US-GLAXOSMITHKLINE-A1057151A

PATIENT
  Sex: Male

DRUGS (3)
  1. LOVAZA [Suspect]
     Indication: PRODUCT USED FOR UNKNOWN INDICATION
     Route: 065
  2. UNSPECIFIED MEDICATION [Suspect]
     Indication: PRODUCT USED FOR UNKNOWN INDICATION
     Route: 065
  3. UNSPECIFIED MEDICATION [Concomitant]

REACTIONS (12)
  - Pain in extremity [Unknown]
  - Back disorder [Unknown]
  - Fall [Unknown]
  - Type 2 diabetes mellitus [Unknown]
  - Arthritis [Unknown]
  - Hypertension [Unknown]
  - Migraine [Unknown]
  - Blood cholesterol increased [Unknown]
  - Depression [Unknown]
  - Asthma [Unknown]
  - Adverse event [Unknown]
  - Drug interaction [Unknown]
